FAERS Safety Report 24553532 (Version 1)
Quarter: 2024Q4

REPORT INFORMATION
  Report Type: Report from Study
  Country: US (occurrence: US)
  Receive Date: 20241028
  Receipt Date: 20241028
  Transmission Date: 20250114
  Serious: No
  Sender: ROCHE
  Company Number: US-ROCHE-1964595

PATIENT
  Sex: Female
  Weight: 33.1 kg

DRUGS (2)
  1. NUTROPIN AQ [Suspect]
     Active Substance: SOMATROPIN
     Indication: Growth hormone deficiency
     Dosage: NUSPIN 20, 7 INJECTIONS PER WEEK, DISPENSED 3 MONTH SUPPLY AND REFILLED THRICE
     Route: 058
  2. NUTROPIN AQ [Suspect]
     Active Substance: SOMATROPIN
     Dosage: FREQUENCY TEXT:DAILY
     Route: 058

REACTIONS (6)
  - Scoliosis [Unknown]
  - Gait disturbance [Unknown]
  - Pain in extremity [Unknown]
  - Arthralgia [Unknown]
  - Back pain [Unknown]
  - Growth retardation [Unknown]
